FAERS Safety Report 5197518-3 (Version None)
Quarter: 2006Q4

REPORT INFORMATION
  Report Type: 
  Country: None (occurrence: None)
  Receive Date: 20060926
  Receipt Date: 20000710
  Transmission Date: 20070319
  Serious: Yes (Hospitalization)
  Sender: FDA-Public Use
  Company Number: 00USA10977

PATIENT
  Sex: Female

DRUGS (3)
  1. VOLTAREN [Suspect]
     Indication: DRUG USE FOR UNKNOWN INDICATION
     Dosage: ORAL
     Route: 048
  2. CELEBREX [Suspect]
     Indication: DRUG USE FOR UNKNOWN INDICATION
  3. COUMADIN [Concomitant]

REACTIONS (1)
  - GASTRIC ULCER HAEMORRHAGE [None]
